FAERS Safety Report 6793567-X (Version None)
Quarter: 2010Q2

REPORT INFORMATION
  Report Type: 
  Country: None (occurrence: None)
  Receive Date: 20100624
  Receipt Date: 20090126
  Transmission Date: 20101027
  Serious: No
  Sender: FDA-Public Use
  Company Number: US-PFIZER INC-2008153582

PATIENT
  Sex: Male
  Weight: 70.3 kg

DRUGS (2)
  1. XALATAN [Suspect]
     Indication: GLAUCOMA
     Dosage: UNK
     Dates: start: 20050501
  2. LORAZEPAM [Concomitant]
     Dosage: UNK

REACTIONS (3)
  - EYE IRRITATION [None]
  - VISUAL IMPAIRMENT [None]
  - VITREOUS FLOATERS [None]
